FAERS Safety Report 12261354 (Version 1)
Quarter: 2016Q2

REPORT INFORMATION
  Report Type: Spontaneous
  Country: US (occurrence: US)
  Receive Date: 20160412
  Receipt Date: 20160412
  Transmission Date: 20160815
  Serious: No
  Sender: FDA-Public Use
  Company Number: US-TEIKOKU PHARMA USA-TPU2016-00209

PATIENT
  Sex: Male
  Weight: 145.28 kg

DRUGS (9)
  1. DIAZEPAM. [Concomitant]
     Active Substance: DIAZEPAM
     Indication: MUSCLE SPASMS
     Route: 048
     Dates: start: 2014
  2. FENTANYL. [Concomitant]
     Active Substance: FENTANYL
     Route: 061
  3. LIDODERM [Suspect]
     Active Substance: LIDOCAINE
     Indication: BACK PAIN
     Dosage: TWO PATCHES ON LOWER SIDE NEAR WAIST AND ONE PATCH ON UPPPER THIGH, EVERY 12 HOURS, TOPICALLY.
     Route: 061
  4. DIAZEPAM. [Concomitant]
     Active Substance: DIAZEPAM
     Dosage: ONE-HALF OF A 10 MG TABLET AT DINNER AND ONE 10 MG TABLET AT BEDTIME BY MOUTH
  5. LIDODERM [Suspect]
     Active Substance: LIDOCAINE
     Indication: NEURALGIA
  6. LIDODERM [Suspect]
     Active Substance: LIDOCAINE
     Indication: MYALGIA
  7. FENTANYL. [Concomitant]
     Active Substance: FENTANYL
     Indication: BACK PAIN
     Route: 061
  8. FENTANYL. [Concomitant]
     Active Substance: FENTANYL
     Route: 061
  9. OXYCODONE [Concomitant]
     Active Substance: OXYCODONE
     Indication: PAIN
     Dosage: EVERY 6 HOURS AS NEEDED BY MOUTH
     Route: 048

REACTIONS (2)
  - Neuralgia [Not Recovered/Not Resolved]
  - Inappropriate schedule of drug administration [Not Recovered/Not Resolved]

NARRATIVE: CASE EVENT DATE: 2014
